FAERS Safety Report 16255194 (Version 1)
Quarter: 2019Q2

REPORT INFORMATION
  Report Type: Spontaneous
  Country: US (occurrence: US)
  Receive Date: 20190430
  Receipt Date: 20190430
  Transmission Date: 20190711
  Serious: Yes (Hospitalization)
  Sender: FDA-Public Use
  Company Number: US-TEVA-2019-US-1043689

PATIENT
  Age: 28 Year
  Sex: Female

DRUGS (2)
  1. OXYCODONE HYDROCHLORIDE. [Suspect]
     Active Substance: OXYCODONE HYDROCHLORIDE
     Indication: CARPAL TUNNEL SYNDROME
     Dosage: PHYSICIAN PRESCRIBED OXYCODONE 15 MG TWICE A DAY
     Route: 048
  2. OXYCODONE HYDROCHLORIDE. [Suspect]
     Active Substance: OXYCODONE HYDROCHLORIDE
     Route: 045

REACTIONS (3)
  - Hypothalamic pituitary adrenal axis suppression [Recovering/Resolving]
  - Intentional product use issue [Unknown]
  - Intentional product misuse [Unknown]
